FAERS Safety Report 10144999 (Version 11)
Quarter: 2018Q3

REPORT INFORMATION
  Report Type: Report from Study
  Country: DE (occurrence: DE)
  Receive Date: 20140501
  Receipt Date: 20180924
  Transmission Date: 20181010
  Serious: Yes (Death, Hospitalization, Other)
  Sender: FDA-Public Use
  Company Number: DE-ROCHE-1377970

PATIENT
  Age: 58 Year
  Sex: Female
  Weight: 73 kg

DRUGS (5)
  1. XELODA [Suspect]
     Active Substance: CAPECITABINE
     Indication: BREAST CANCER
     Dosage: DAILY DOSE: 4000 MG/M2 MILLIGRAM(S)/SQ. METER EVERY DAY
     Route: 048
     Dates: start: 20110803, end: 20110824
  2. XELODA [Suspect]
     Active Substance: CAPECITABINE
     Indication: BREAST CANCER METASTATIC
     Dosage: DAILY DOSE: 4000 MG/M2 MILLIGRAM(S)/SQ. METER EVERY DAY
     Route: 048
     Dates: start: 20110824, end: 20110824
  3. BEVACIZUMAB. [Suspect]
     Active Substance: BEVACIZUMAB
     Indication: BREAST CANCER METASTATIC
     Dosage: = 15 MG/KG, DAILY DOSE: 1140 MG MILLIGRAM(S) EVERY 3 WEEK
     Route: 042
     Dates: start: 20110803, end: 20110803
  4. CARBOPLATIN. [Concomitant]
     Active Substance: CARBOPLATIN
     Route: 065
     Dates: start: 200508
  5. BEVACIZUMAB. [Suspect]
     Active Substance: BEVACIZUMAB
     Indication: BREAST CANCER METASTATIC
     Dosage: 15 MG/KG
     Route: 042
     Dates: start: 20110803, end: 20110824

REACTIONS (8)
  - Faecaloma [Recovered/Resolved]
  - Gastritis [Not Recovered/Not Resolved]
  - Pulmonary embolism [Recovered/Resolved]
  - Fall [Fatal]
  - Cerebral haemorrhage [Fatal]
  - Tumour pain [Not Recovered/Not Resolved]
  - Spinal fracture [Not Recovered/Not Resolved]
  - Pancreatitis [Not Recovered/Not Resolved]

NARRATIVE: CASE EVENT DATE: 20110825
